FAERS Safety Report 4951374-4 (Version None)
Quarter: 2006Q1

REPORT INFORMATION
  Report Type: 
  Country: None (occurrence: None)
  Receive Date: 20060317
  Receipt Date: 20060303
  Transmission Date: 20060701
  Serious: Yes (Hospitalization)
  Sender: FDA-Public Use
  Company Number: 2006RL000074

PATIENT
  Age: 67 Year
  Sex: Female

DRUGS (4)
  1. FENOFIBRATE [Suspect]
     Indication: DRUG USE FOR UNKNOWN INDICATION
     Dosage: 160 MG;QD;
  2. ROSUVASTATIN (ROSUVASTATIN) [Suspect]
     Indication: DRUG USE FOR UNKNOWN INDICATION
     Dosage: SEE IMAGE
  3. HYDROCHLOROTHIAZIDE/ OLMESARTAN [Concomitant]
  4. OXAPROZIN [Concomitant]

REACTIONS (22)
  - ALDOLASE INCREASED [None]
  - BLOOD CREATINE PHOSPHOKINASE MB INCREASED [None]
  - CARDIAC ANEURYSM [None]
  - CARDIAC FAILURE ACUTE [None]
  - CHEST DISCOMFORT [None]
  - CHEST PAIN [None]
  - CONGESTIVE CARDIOMYOPATHY [None]
  - DRUG INTERACTION [None]
  - DRUG TOXICITY [None]
  - EJECTION FRACTION DECREASED [None]
  - HAEMATURIA [None]
  - MYOGLOBIN BLOOD INCREASED [None]
  - MYOGLOBIN URINE PRESENT [None]
  - MYOPATHY [None]
  - PAIN IN EXTREMITY [None]
  - PROTEINURIA [None]
  - RENAL FAILURE ACUTE [None]
  - RENAL TUBULAR NECROSIS [None]
  - RHABDOMYOLYSIS [None]
  - SHOCK [None]
  - SHOULDER PAIN [None]
  - TROPONIN T INCREASED [None]
